FAERS Safety Report 9106481 (Version 2)
Quarter: 2013Q3

REPORT INFORMATION
  Report Type: Spontaneous
  Country: US (occurrence: US)
  Receive Date: 20130221
  Receipt Date: 20130808
  Transmission Date: 20140515
  Serious: Yes (Hospitalization)
  Sender: FDA-Public Use
  Company Number: PHEH2013US004173

PATIENT
  Age: 71 Year
  Sex: Female

DRUGS (3)
  1. EXJADE [Suspect]
     Indication: MYELODYSPLASTIC SYNDROME
     Dosage: 500 MG, DAILY
     Route: 048
     Dates: start: 20130128, end: 20130215
  2. EXJADE [Suspect]
     Dosage: 625 MG, DAILY
     Route: 048
     Dates: start: 20130701, end: 20130707
  3. CHEMOTHERAPEUTICS NOS [Concomitant]
     Dosage: UNK UKN, UNK

REACTIONS (4)
  - Bacterial infection [Not Recovered/Not Resolved]
  - Generalised oedema [Recovering/Resolving]
  - Rash generalised [Recovering/Resolving]
  - Urticaria [Unknown]
